FAERS Safety Report 6566645-8 (Version None)
Quarter: 2010Q1

REPORT INFORMATION
  Report Type: 
  Country: None (occurrence: None)
  Receive Date: 20100202
  Receipt Date: 20100120
  Transmission Date: 20100710
  Serious: Yes (Hospitalization)
  Sender: FDA-Public Use
  Company Number: US-ROCHE-681416

PATIENT
  Age: 64 Year
  Sex: Male
  Weight: 103.4 kg

DRUGS (4)
  1. BEVACIZUMAB [Suspect]
     Indication: PROSTATE CANCER
     Dosage: LAST DOSE PRIOR TO SAE WAS RECEIVED ON 14 JANUARY 2010 AT A DOSE OF 1551 MG.
     Route: 065
     Dates: start: 20091019
  2. LUPRON [Suspect]
     Indication: PROSTATE CANCER
     Route: 065
     Dates: start: 20091019
  3. DOCETAXEL [Suspect]
     Indication: PROSTATE CANCER
     Dosage: DOSE, FREQUENCY UNSPECIFIED.
     Route: 065
     Dates: start: 20091019
  4. CASODEX [Concomitant]
     Dates: start: 20100114

REACTIONS (1)
  - MENINGITIS ASEPTIC [None]
